FAERS Safety Report 9030497 (Version 22)
Quarter: 2015Q3

REPORT INFORMATION
  Report Type: Report from Study
  Country: CA (occurrence: CA)
  Receive Date: 20130122
  Receipt Date: 20150901
  Transmission Date: 20151125
  Serious: Yes (Other)
  Sender: FDA-Public Use
  Company Number: CA-ROCHE-1125436

PATIENT
  Age: 41 Year
  Sex: Female
  Weight: 108 kg

DRUGS (11)
  1. TYLENOL WITH CODEINE [Concomitant]
     Active Substance: ACETAMINOPHEN\CODEINE PHOSPHATE
  2. METHOTREXATE [Concomitant]
     Active Substance: METHOTREXATE
     Route: 048
  3. ACTEMRA [Suspect]
     Active Substance: TOCILIZUMAB
     Indication: RHEUMATOID ARTHRITIS
     Route: 042
     Dates: start: 20120717
  4. VITAMIN B50 [Concomitant]
  5. CLONAZEPAM. [Concomitant]
     Active Substance: CLONAZEPAM
  6. CYMBALTA [Concomitant]
     Active Substance: DULOXETINE HYDROCHLORIDE
  7. CELEBREX [Concomitant]
     Active Substance: CELECOXIB
  8. TRAZODONE [Concomitant]
     Active Substance: TRAZODONE HYDROCHLORIDE
  9. LEUCOVORIN. [Concomitant]
     Active Substance: LEUCOVORIN
  10. ZOPICLONE [Concomitant]
     Active Substance: ZOPICLONE
  11. TEMAZEPAM. [Concomitant]
     Active Substance: TEMAZEPAM

REACTIONS (22)
  - Appendix disorder [Unknown]
  - Nausea [Recovering/Resolving]
  - Pyrexia [Unknown]
  - Heart rate increased [Unknown]
  - Insomnia [Unknown]
  - Pain [Unknown]
  - Anxiety [Unknown]
  - Weight increased [Unknown]
  - Influenza [Recovered/Resolved]
  - Blood pressure increased [Unknown]
  - Thrombosis [Unknown]
  - Fatigue [Not Recovered/Not Resolved]
  - Back pain [Not Recovered/Not Resolved]
  - Infusion related reaction [Unknown]
  - Weight decreased [Unknown]
  - Blood pressure fluctuation [Unknown]
  - Heart rate increased [Unknown]
  - Pharyngitis streptococcal [Not Recovered/Not Resolved]
  - Abdominal pain [Unknown]
  - Stress [Unknown]
  - Pain in extremity [Not Recovered/Not Resolved]
  - Arthralgia [Not Recovered/Not Resolved]

NARRATIVE: CASE EVENT DATE: 201208
